FAERS Safety Report 15702351 (Version 1)
Quarter: 2018Q4

REPORT INFORMATION
  Report Type: Spontaneous
  Country: FR (occurrence: FR)
  Receive Date: 20181210
  Receipt Date: 20181210
  Transmission Date: 20190205
  Serious: Yes (Death, Hospitalization, Other)
  Sender: FDA-Public Use
  Company Number: FR-SUN PHARMACEUTICAL INDUSTRIES LTD-2018RR-193018

PATIENT
  Age: 3 Year
  Sex: Male

DRUGS (3)
  1. DIAZEPAM. [Concomitant]
     Active Substance: DIAZEPAM
     Indication: PRODUCT USED FOR UNKNOWN INDICATION
     Dosage: UNK ()
     Route: 065
  2. TRAMADOL. [Suspect]
     Active Substance: TRAMADOL
     Indication: ORAL HERPES
     Dosage: UNK ()
     Route: 065
  3. PARACETAMOL [Suspect]
     Active Substance: ACETAMINOPHEN
     Indication: PYREXIA
     Dosage: UNK ()
     Route: 065

REACTIONS (13)
  - Hypoxia [Fatal]
  - Overdose [Fatal]
  - Product use issue [Fatal]
  - Hypertension [Fatal]
  - Hepatocellular injury [Fatal]
  - Dyspnoea [Fatal]
  - Cardiac arrest [Fatal]
  - Hypertonia [Fatal]
  - Toxicity to various agents [Fatal]
  - Tachycardia [Fatal]
  - Decreased eye contact [Fatal]
  - Balance disorder [Fatal]
  - Apnoea [Fatal]
